FAERS Safety Report 7806312-3 (Version None)
Quarter: 2011Q4

REPORT INFORMATION
  Report Type: 
  Country: None (occurrence: None)
  Receive Date: 20111011
  Receipt Date: 20110322
  Transmission Date: 20120403
  Serious: No
  Sender: FDA-Public Use
  Company Number: US-GLAXOSMITHKLINE-A0919429A

PATIENT
  Age: 5 Year
  Sex: Female

DRUGS (3)
  1. SINGULAIR [Concomitant]
  2. ZYRTEC [Concomitant]
  3. VERDESO [Suspect]
     Indication: ECZEMA
     Dosage: 1APP TWICE PER DAY
     Route: 061
     Dates: start: 20110310, end: 20110310

REACTIONS (4)
  - APPLICATION SITE SCAB [None]
  - APPLICATION SITE ERYTHEMA [None]
  - APPLICATION SITE PAIN [None]
  - APPLICATION SITE INFLAMMATION [None]
